FAERS Safety Report 9641845 (Version 1)
Quarter: 2013Q4

REPORT INFORMATION
  Report Type: Spontaneous
  Country: AU (occurrence: AU)
  Receive Date: 20131023
  Receipt Date: 20131023
  Transmission Date: 20140711
  Serious: No
  Sender: FDA-Public Use
  Company Number: AU-B.I. PHARMACEUTICALS,INC./RIDGEFIELD-2013-BI-33657AU

PATIENT
  Age: 6 Decade
  Sex: 0

DRUGS (2)
  1. TRAJENTA [Suspect]
  2. LIRAGLUTIDE [Suspect]

REACTIONS (1)
  - Angioedema [Unknown]
